FAERS Safety Report 7607130-1 (Version None)
Quarter: 2011Q3

REPORT INFORMATION
  Report Type: 
  Country: None (occurrence: None)
  Receive Date: 20110713
  Receipt Date: 20110628
  Transmission Date: 20111222
  Serious: No
  Sender: FDA-Public Use
  Company Number: US-B.I. PHARMACEUTICALS,INC./RIDGEFIELD-2011-BP-16550BP

PATIENT
  Age: 70 Year
  Sex: Female

DRUGS (4)
  1. AVAPRO [Concomitant]
     Indication: HYPERTENSION
  2. LIPITOR [Concomitant]
     Indication: BLOOD CHOLESTEROL INCREASED
  3. PRADAXA [Suspect]
     Indication: ATRIAL FIBRILLATION
     Dosage: 300 MG
     Route: 048
     Dates: start: 20110528
  4. MULTAQ [Concomitant]
     Indication: ATRIAL FIBRILLATION

REACTIONS (2)
  - OCULAR HYPERAEMIA [None]
  - MUSCULOSKELETAL PAIN [None]
